FAERS Safety Report 24562873 (Version 3)
Quarter: 2024Q4

REPORT INFORMATION
  Report Type: Report from Study
  Country: US (occurrence: US)
  Receive Date: 20241029
  Receipt Date: 20241215
  Transmission Date: 20250115
  Serious: Yes (Other)
  Sender: ABBVIE
  Company Number: US-ABBVIE-5980111

PATIENT
  Age: 72 Year
  Sex: Female
  Weight: 59 kg

DRUGS (15)
  1. DIVALPROEX SODIUM [Suspect]
     Active Substance: DIVALPROEX SODIUM
     Indication: Seizure
     Dosage: TIME INTERVAL: 0.33333333 DAYS: FORM STRENGTH: 250 MILLIGRAM
     Route: 048
     Dates: start: 1994
  2. DIVALPROEX SODIUM [Suspect]
     Active Substance: DIVALPROEX SODIUM
     Indication: Seizure
     Dosage: 2 TABLETS?AT AM,?FORM STRENGTH: 250 MILLIGRAM
     Route: 048
  3. DIVALPROEX SODIUM [Suspect]
     Active Substance: DIVALPROEX SODIUM
     Indication: Seizure
     Dosage: 4 TABLETS?FORM STRENGTH: 250 MILLIGRAM,?AT DINNER
     Route: 048
  4. DIVALPROEX SODIUM [Suspect]
     Active Substance: DIVALPROEX SODIUM
     Indication: Seizure
     Dosage: FORM STRENGTH: 250 MILLIGRAM,?BEDTIME
     Route: 048
  5. DIVALPROEX SODIUM [Suspect]
     Active Substance: DIVALPROEX SODIUM
     Indication: Seizure
     Dosage: FORM STRENGTH: 250 MILLIGRAM,?10 TABLETS
     Route: 048
  6. PHENOBARBITAL [Concomitant]
     Active Substance: PHENOBARBITAL
     Indication: Seizure
     Dosage: TIME INTERVAL: 0.33333333 DAYS
     Route: 048
  7. ALENDRONATE [Concomitant]
     Active Substance: ALENDRONATE SODIUM
     Indication: Osteoporosis
     Route: 048
  8. GABAPENTIN [Concomitant]
     Active Substance: GABAPENTIN
     Indication: Seizure
     Dosage: AT AM
     Route: 048
  9. GABAPENTIN [Concomitant]
     Active Substance: GABAPENTIN
     Indication: Seizure
     Dosage: AT AM,?2 CAPSULE
     Route: 048
  10. GABAPENTIN [Concomitant]
     Active Substance: GABAPENTIN
     Indication: Seizure
     Dosage: 2 CAPSULE?BEDTIME
     Route: 048
  11. ATORVASTATIN [Concomitant]
     Active Substance: ATORVASTATIN
     Indication: Blood cholesterol increased
     Route: 048
  12. ATORVASTATIN [Concomitant]
     Active Substance: ATORVASTATIN
     Indication: Blood cholesterol increased
     Dosage: BEDTIME
     Route: 048
  13. PREVNAR 13 [Concomitant]
     Active Substance: STREPTOCOCCUS PNEUMONIAE TYPE 1 CAPSULAR POLYSACCHARIDE DIPHTHERIA CRM197 PROTEIN CONJUGATE ANTIGEN\
     Indication: Product used for unknown indication
  14. PNEUMOVAX 23 [Concomitant]
     Active Substance: PNEUMOCOCCAL VACCINE, POLYVALENT 23
     Indication: Product used for unknown indication
  15. PREVNAR 20 [Concomitant]
     Active Substance: PNEUMOCOCCAL 20-VALENT CONJUGATE VACCINE
     Indication: Product used for unknown indication
     Dosage: 1 DOSE

REACTIONS (41)
  - Ovarian cancer recurrent [Unknown]
  - Wrist fracture [Recovered/Resolved]
  - Renal cancer [Unknown]
  - Wrist fracture [Recovering/Resolving]
  - Adverse drug reaction [Unknown]
  - Hepatic mass [Unknown]
  - Neoplasm malignant [Unknown]
  - Renal mass [Unknown]
  - Hepatic cancer [Unknown]
  - Mass [Unknown]
  - Neoplasm malignant [Unknown]
  - Fall [Unknown]
  - Mean cell haemoglobin increased [Unknown]
  - Mean cell volume increased [Unknown]
  - Red blood cell count decreased [Unknown]
  - Muscle spasms [Not Recovered/Not Resolved]
  - Upper limb fracture [Unknown]
  - Device dislocation [Unknown]
  - Blood triglycerides increased [Unknown]
  - Protein urine present [Unknown]
  - Urine abnormality [Unknown]
  - Haematochezia [Not Recovered/Not Resolved]
  - Constipation [Unknown]
  - Dysuria [Unknown]
  - Cardiovascular disorder [Unknown]
  - Haematuria [Unknown]
  - Vaginal haemorrhage [Unknown]
  - Eosinophil count decreased [Unknown]
  - Red blood cell sedimentation rate increased [Unknown]
  - Chromaturia [Unknown]
  - Haemoglobin urine present [Unknown]
  - C-reactive protein increased [Unknown]
  - Smear cervix abnormal [Unknown]
  - Papilloma viral infection [Unknown]
  - Cervix haemorrhage uterine [Unknown]
  - Vulvovaginal injury [Unknown]
  - Large intestine polyp [Unknown]
  - Vaginal disorder [Unknown]
  - Cervical dysplasia [Unknown]
  - Urogenital haemorrhage [Unknown]
  - Anaemia macrocytic [Unknown]

NARRATIVE: CASE EVENT DATE: 20220701
